FAERS Safety Report 11990897 (Version 1)
Quarter: 2016Q1

REPORT INFORMATION
  Report Type: Spontaneous
  Country: US (occurrence: US)
  Receive Date: 20160202
  Receipt Date: 20160202
  Transmission Date: 20160526
  Serious: No
  Sender: FDA-Public Use
  Company Number: US-MISSION PHARMACAL COMPANY-1047234

PATIENT
  Age: 34 Year
  Sex: Female

DRUGS (2)
  1. THIOLA [Suspect]
     Active Substance: TIOPRONIN
     Indication: CALCULUS URINARY
     Route: 065
     Dates: start: 20150624
  2. NEOSPORIN [Concomitant]
     Active Substance: BACITRACIN ZINC\NEOMYCIN SULFATE\POLYMYXIN B SULFATE
     Route: 065

REACTIONS (6)
  - Paraesthesia [Unknown]
  - Rash [Recovered/Resolved]
  - Arthralgia [Unknown]
  - Burning sensation [Unknown]
  - Rash [Unknown]
  - Drug dose omission [Unknown]
